FAERS Safety Report 12447956 (Version 1)
Quarter: 2016Q2

REPORT INFORMATION
  Report Type: Spontaneous
  Country: JP (occurrence: JP)
  Receive Date: 20160608
  Receipt Date: 20160608
  Transmission Date: 20160815
  Serious: Yes (Hospitalization, Other)
  Sender: FDA-Public Use
  Company Number: JP-PFIZER INC-2016238354

PATIENT
  Age: 75 Year
  Sex: Male

DRUGS (3)
  1. BENZYLPENICILLIN [Concomitant]
     Active Substance: PENICILLIN G
     Indication: SURGERY
     Dosage: 400 MEGA UNITS ? 6 PER DAY
  2. LEVOFLOXACIN. [Suspect]
     Active Substance: LEVOFLOXACIN
     Dosage: 500 MG, 1X/DAY
  3. CEFOPERAZONE W/SULBACTAM [Suspect]
     Active Substance: CEFOPERAZONE\SULBACTAM
     Dosage: 1 G, 2X/DAY

REACTIONS (1)
  - Endocarditis enterococcal [Unknown]

NARRATIVE: CASE EVENT DATE: 20150225
